FAERS Safety Report 15851986 (Version 4)
Quarter: 2025Q4

REPORT INFORMATION
  Report Type: Report from Study
  Country: GB (occurrence: GB)
  Receive Date: 20190122
  Receipt Date: 20251227
  Transmission Date: 20260118
  Serious: Yes (Life-Threatening, Hospitalization, Other)
  Sender: AUROBINDO
  Company Number: GB-AUROBINDO-AUR-APL-2019-002304

PATIENT
  Age: 39 Year
  Weight: 55 kg

DRUGS (1)
  1. ACETAMINOPHEN [Suspect]
     Active Substance: ACETAMINOPHEN
     Indication: Product used for unknown indication
     Dosage: 16-62 GRAMS
     Route: 061

REACTIONS (7)
  - Overdose [Recovering/Resolving]
  - Acute hepatic failure [Recovered/Resolved]
  - Sepsis [Recovered/Resolved]
  - Hepatic artery thrombosis [Recovered/Resolved]
  - Transaminases increased [Recovered/Resolved]
  - Hepatic infarction [Recovered/Resolved]
  - Encephalopathy [Unknown]
